FAERS Safety Report 15853566 (Version 1)
Quarter: 2019Q1

REPORT INFORMATION
  Report Type: Report from Study
  Country: US (occurrence: US)
  Receive Date: 20190122
  Receipt Date: 20190122
  Transmission Date: 20190417
  Serious: Yes (Hospitalization)
  Sender: FDA-Public Use
  Company Number: US-JNJFOC-20190101944

PATIENT
  Age: 83 Year
  Sex: Female

DRUGS (13)
  1. TAPAZOLE [Concomitant]
     Active Substance: METHIMAZOLE
  2. ASPIRIN. [Concomitant]
     Active Substance: ASPIRIN
  3. FUROSEMIDE. [Concomitant]
     Active Substance: FUROSEMIDE
  4. BUDESONIDE. [Concomitant]
     Active Substance: BUDESONIDE
  5. BIFIDOBACTERIUM LACTIS [Concomitant]
     Active Substance: BIFIDOBACTERIUM ANIMALIS LACTIS
  6. ATENOLOL. [Concomitant]
     Active Substance: ATENOLOL
  7. LEVALBUTEROL. [Concomitant]
     Active Substance: LEVALBUTEROL
  8. CELECOXIB. [Concomitant]
     Active Substance: CELECOXIB
  9. CYANOCOBALAMIN. [Concomitant]
     Active Substance: CYANOCOBALAMIN
  10. TOCOPHEROL [Concomitant]
     Active Substance: TOCOPHEROL
  11. IMBRUVICA [Suspect]
     Active Substance: IBRUTINIB
     Indication: LYMPHOID LEUKAEMIA (IN REMISSION)
     Route: 048
     Dates: start: 20181208
  12. CLONAZEPAM. [Concomitant]
     Active Substance: CLONAZEPAM
  13. INCRUSE ELLIPTA [Concomitant]
     Active Substance: UMECLIDINIUM BROMIDE

REACTIONS (4)
  - Haemorrhage [Unknown]
  - Disease progression [Unknown]
  - Incorrect dose administered [Unknown]
  - Off label use [Unknown]

NARRATIVE: CASE EVENT DATE: 201812
